FAERS Safety Report 8388721-X (Version None)
Quarter: 2012Q2

REPORT INFORMATION
  Report Type: 
  Country: None (occurrence: None)
  Receive Date: 20120527
  Receipt Date: 20120518
  Transmission Date: 20120825
  Serious: Yes (Other)
  Sender: FDA-Public Use
  Company Number: GB-TEVA-339259ISR

PATIENT
  Sex: Female

DRUGS (5)
  1. FOLIC ACID [Concomitant]
  2. CALCICHEW D3 [Concomitant]
  3. ETANERCEPT [Concomitant]
     Dosage: 50 MG, WEEKLY
  4. METHOTREXATE [Suspect]
  5. NAPROXEN [Concomitant]
     Dosage: 500 MG, 2X/DAY

REACTIONS (2)
  - DRUG INEFFECTIVE [None]
  - KNEE ARTHROPLASTY [None]
